FAERS Safety Report 15651446 (Version 1)
Quarter: 2018Q4

REPORT INFORMATION
  Report Type: Spontaneous
  Country: US (occurrence: US)
  Receive Date: 20181123
  Receipt Date: 20181123
  Transmission Date: 20190205
  Serious: No
  Sender: FDA-Public Use
  Company Number: US-SA-2018SA318734

PATIENT
  Sex: Male

DRUGS (2)
  1. TOUJEO [Suspect]
     Active Substance: INSULIN GLARGINE
     Dosage: 44 U
     Route: 065
     Dates: start: 201802
  2. TOUJEO [Suspect]
     Active Substance: INSULIN GLARGINE
     Dosage: 46 UNK
     Route: 065

REACTIONS (1)
  - Glycosylated haemoglobin increased [Unknown]
